FAERS Safety Report 18111334 (Version 5)
Quarter: 2020Q4

REPORT INFORMATION
  Report Type: Report from Study
  Country: ES (occurrence: ES)
  Receive Date: 20200805
  Receipt Date: 20201118
  Transmission Date: 20210113
  Serious: Yes (Hospitalization, Other)
  Sender: FDA-Public Use
  Company Number: ES-BRISTOL-MYERS SQUIBB COMPANY-BMS-2020-062021

PATIENT
  Age: 23 Year
  Sex: Female
  Weight: 43 kg

DRUGS (6)
  1. SUNITINIB MALATE. [Suspect]
     Active Substance: SUNITINIB MALATE
     Dosage: 12.5 MILLIGRAM
     Route: 065
     Dates: start: 20200902
  2. OXICODONA [OXYCODONE] [Concomitant]
     Active Substance: OXYCODONE
     Indication: PAIN
     Dosage: UNK
     Route: 048
     Dates: start: 2020
  3. NIVOLUMAB [Suspect]
     Active Substance: NIVOLUMAB
     Indication: ALVEOLAR SOFT PART SARCOMA
     Dosage: 3 MILLIGRAM/KILOGRAM, Q2WK
     Route: 042
     Dates: start: 20190103, end: 20200806
  4. FERRUM [IRON] [Concomitant]
     Active Substance: IRON
     Indication: ANAEMIA
     Dosage: UNK
     Route: 048
     Dates: start: 2020
  5. PREGABALINA [Concomitant]
     Active Substance: PREGABALIN
     Indication: PAIN
     Dosage: UNK
     Route: 048
     Dates: start: 2020
  6. SUNITINIB MALATE. [Suspect]
     Active Substance: SUNITINIB MALATE
     Indication: ALVEOLAR SOFT PART SARCOMA
     Dosage: 37.5 MILLIGRAM AND 25 MILLIGRAM
     Route: 048
     Dates: start: 20181219, end: 20200717

REACTIONS (2)
  - Pseudomembranous colitis [Recovered/Resolved]
  - Cystitis escherichia [Recovered/Resolved]

NARRATIVE: CASE EVENT DATE: 20200719
